FAERS Safety Report 10722056 (Version 1)
Quarter: 2015Q1

REPORT INFORMATION
  Report Type: Spontaneous
  Country: US (occurrence: US)
  Receive Date: 20150120
  Receipt Date: 20150120
  Transmission Date: 20150721
  Serious: No
  Sender: FDA-Public Use
  Company Number: US-TEVA-489928USA

PATIENT

DRUGS (1)
  1. DEXTROAMPHETAMINE SULFATE. [Suspect]
     Active Substance: DEXTROAMPHETAMINE SULFATE
     Indication: ATTENTION DEFICIT/HYPERACTIVITY DISORDER

REACTIONS (9)
  - Feeling of despair [Unknown]
  - Attention deficit/hyperactivity disorder [Unknown]
  - Binge eating [Unknown]
  - Depression [Unknown]
  - Abdominal pain upper [Unknown]
  - Drug ineffective [Unknown]
  - Change in sustained attention [Unknown]
  - Impulsive behaviour [Unknown]
  - Dizziness [Unknown]
